FAERS Safety Report 4788322-6 (Version None)
Quarter: 2005Q4

REPORT INFORMATION
  Report Type: 
  Country: None (occurrence: None)
  Receive Date: 20051005
  Receipt Date: 20050919
  Transmission Date: 20060501
  Serious: Yes (Disabling)
  Sender: FDA-Public Use
  Company Number: 2005UW14269

PATIENT
  Age: 40 Year
  Sex: Male
  Weight: 84.1 kg

DRUGS (3)
  1. LOSEC [Suspect]
     Indication: REFLUX OESOPHAGITIS
     Route: 048
     Dates: start: 20040901
  2. LOSEC [Suspect]
     Route: 048
  3. PREVACID [Concomitant]

REACTIONS (1)
  - ORAL DISCOMFORT [None]
